FAERS Safety Report 20633418 (Version 1)
Quarter: 2022Q1

REPORT INFORMATION
  Report Type: Spontaneous
  Country: US (occurrence: None)
  Receive Date: 20220324
  Receipt Date: 20220324
  Transmission Date: 20220424
  Serious: Yes (Other)
  Sender: FDA-Public Use
  Company Number: US-Unichem Pharmaceuticals (USA) Inc-UCM202203-000266

PATIENT
  Age: 32 Year
  Sex: Female

DRUGS (7)
  1. METRONIDAZOLE [Suspect]
     Active Substance: METRONIDAZOLE
     Indication: Product used for unknown indication
  2. METRONIDAZOLE [Suspect]
     Active Substance: METRONIDAZOLE
  3. METRONIDAZOLE [Suspect]
     Active Substance: METRONIDAZOLE
  4. METRONIDAZOLE [Suspect]
     Active Substance: METRONIDAZOLE
  5. METRONIDAZOLE [Suspect]
     Active Substance: METRONIDAZOLE
  6. METRONIDAZOLE [Suspect]
     Active Substance: METRONIDAZOLE
     Dosage: HALF TABLET OF 125MG TWICE
  7. METRONIDAZOLE [Suspect]
     Active Substance: METRONIDAZOLE

REACTIONS (1)
  - Anaphylactic reaction [Recovered/Resolved]
